FAERS Safety Report 4267875-0 (Version None)
Quarter: 2004Q1

REPORT INFORMATION
  Report Type: 
  Country: None (occurrence: None)
  Receive Date: 20040109
  Receipt Date: 20040107
  Transmission Date: 20041129
  Serious: Yes (Death, Hospitalization)
  Sender: FDA-Public Use
  Company Number: US-GLAXOSMITHKLINE-A0491901A

PATIENT
  Age: 43 Year
  Sex: Male

DRUGS (7)
  1. ADVAIR DISKUS 250/50 [Suspect]
     Indication: CHRONIC OBSTRUCTIVE AIRWAYS DISEASE
     Dosage: 1PUFF TWICE PER DAY
     Route: 055
     Dates: start: 20020801, end: 20031101
  2. THEO-DUR [Concomitant]
  3. INHALER [Concomitant]
  4. ZOLOFT [Concomitant]
  5. PREDNISONE [Concomitant]
  6. NEXIUM [Concomitant]
  7. OXYGEN [Concomitant]

REACTIONS (5)
  - APNOEA [None]
  - BRAIN DEATH [None]
  - INJURY [None]
  - RESPIRATORY ARREST [None]
  - ROAD TRAFFIC ACCIDENT [None]
